FAERS Safety Report 7956782-5 (Version None)
Quarter: 2011Q4

REPORT INFORMATION
  Report Type: 
  Country: None (occurrence: None)
  Receive Date: 20111201
  Receipt Date: 20111125
  Transmission Date: 20120403
  Serious: Yes (Hospitalization)
  Sender: FDA-Public Use
  Company Number: AUR-APL-2011-05955

PATIENT
  Age: 60 Year
  Sex: Male

DRUGS (10)
  1. AMITRIPTYLINE HCL [Concomitant]
  2. NULYTELY [Concomitant]
  3. NAPROXEN [Suspect]
     Indication: BACK PAIN
     Dosage: 1000 MG (500 MG, 2 IN 1 D), ORAL
     Route: 048
     Dates: start: 20111109, end: 20111120
  4. NITROGLYCERIN [Concomitant]
  5. ASPIRIN [Concomitant]
  6. LERCANIDIPINE [Concomitant]
  7. SIMVASTATIN [Concomitant]
  8. TRAMADOL HCL [Concomitant]
  9. ACETAMINOPHEN [Concomitant]
  10. ATENOLOL [Concomitant]

REACTIONS (4)
  - DUODENAL ULCER HAEMORRHAGE [None]
  - HAEMOGLOBIN DECREASED [None]
  - DIZZINESS POSTURAL [None]
  - TACHYCARDIA [None]
